FAERS Safety Report 14859535 (Version 3)
Quarter: 2019Q2

REPORT INFORMATION
  Report Type: Spontaneous
  Country: US (occurrence: US)
  Receive Date: 20180508
  Receipt Date: 20190516
  Transmission Date: 20190711
  Serious: No
  Sender: FDA-Public Use
  Company Number: US-PFIZER INC-2018006632

PATIENT
  Age: 66 Year
  Sex: Female
  Weight: 97.51 kg

DRUGS (4)
  1. CITALOPRAM [Concomitant]
     Active Substance: CITALOPRAM HYDROBROMIDE
     Dosage: UNK
     Dates: start: 2006
  2. DOCETAXEL. [Suspect]
     Active Substance: DOCETAXEL
     Indication: INVASIVE DUCTAL BREAST CARCINOMA
     Dosage: 120-150 MG, EVERY 3 WEEKS (6 CYCLES)
     Dates: start: 20130408, end: 20130722
  3. PARAPLATIN [Concomitant]
     Active Substance: CARBOPLATIN
     Indication: CHEMOTHERAPY
     Dosage: UNK
  4. TAXOTERE [Suspect]
     Active Substance: DOCETAXEL
     Indication: INVASIVE DUCTAL BREAST CARCINOMA
     Dosage: 120-150 MG, EVERY 3 WEEKS (6 CYCLES)
     Dates: start: 20130408, end: 20130722

REACTIONS (5)
  - Hair disorder [Not Recovered/Not Resolved]
  - Madarosis [Unknown]
  - Hair colour changes [Not Recovered/Not Resolved]
  - Alopecia [Unknown]
  - Hair texture abnormal [Not Recovered/Not Resolved]

NARRATIVE: CASE EVENT DATE: 201307
